FAERS Safety Report 17559386 (Version 4)
Quarter: 2021Q1

REPORT INFORMATION
  Report Type: Other
  Country: GB (occurrence: GB)
  Receive Date: 20200319
  Receipt Date: 20210209
  Transmission Date: 20210419
  Serious: Yes (Death, Hospitalization)
  Sender: FDA-Public Use
  Company Number: GB-ROCHE-2559355

PATIENT
  Age: 76 Year
  Sex: Female

DRUGS (51)
  1. FOLIC ACID. [Concomitant]
     Active Substance: FOLIC ACID
     Route: 048
     Dates: start: 20160211
  2. PARACETAMOL [Concomitant]
     Active Substance: ACETAMINOPHEN
     Route: 048
  3. POTASSIUM CHLORIDE. [Concomitant]
     Active Substance: POTASSIUM CHLORIDE
     Indication: HYPOKALAEMIA
     Dosage: 1 OTHER, QD
     Route: 042
     Dates: start: 20190329, end: 20190401
  4. VANCOMYCIN [Concomitant]
     Active Substance: VANCOMYCIN
     Route: 050
     Dates: start: 20200302, end: 20200316
  5. DEXAMETHASONE. [Concomitant]
     Active Substance: DEXAMETHASONE
     Route: 048
     Dates: start: 20190110, end: 2019
  6. CEPHALEXIN. [Concomitant]
     Active Substance: CEPHALEXIN
     Indication: URINARY TRACT INFECTION
     Route: 048
     Dates: start: 20190208, end: 2019
  7. SERTRALINE [Concomitant]
     Active Substance: SERTRALINE HYDROCHLORIDE
     Route: 048
  8. MIDAZOLAM. [Concomitant]
     Active Substance: MIDAZOLAM
     Route: 058
     Dates: start: 2020
  9. HYDROCORTISONE. [Concomitant]
     Active Substance: HYDROCORTISONE
     Route: 061
     Dates: start: 20191025, end: 2019
  10. MORPHINE SULPHATE [Concomitant]
     Active Substance: MORPHINE SULFATE
     Route: 058
     Dates: start: 20190330
  11. TRASTUZUMAB. [Suspect]
     Active Substance: TRASTUZUMAB
     Route: 042
     Dates: start: 20190118
  12. COCODAMOL [Concomitant]
     Active Substance: ACETAMINOPHEN\CODEINE PHOSPHATE
     Route: 048
     Dates: end: 20200512
  13. ONDANSETRON [Concomitant]
     Active Substance: ONDANSETRON
     Route: 048
     Dates: start: 2019
  14. DEXAMETHASONE. [Concomitant]
     Active Substance: DEXAMETHASONE
     Indication: METASTASES TO CENTRAL NERVOUS SYSTEM
     Route: 048
     Dates: end: 20190109
  15. MIDAZOLAM. [Concomitant]
     Active Substance: MIDAZOLAM
     Route: 050
     Dates: start: 2020
  16. TRASTUZUMAB. [Suspect]
     Active Substance: TRASTUZUMAB
     Indication: BREAST CANCER METASTATIC
     Dosage: (DOSE MODIFIED).
     Route: 042
     Dates: start: 20180116, end: 20180116
  17. PERTUZUMAB. [Suspect]
     Active Substance: PERTUZUMAB
     Dosage: (DRUG DISCONTINUED DUE TO DISEASE PROGRESSION FURTHER ANTICANCER TREATMENT)
     Route: 042
     Dates: start: 20180503, end: 20181115
  18. AMOXICILLIN. [Concomitant]
     Active Substance: AMOXICILLIN
     Indication: URINARY TRACT INFECTION
     Route: 042
     Dates: start: 20190330, end: 20190401
  19. LACOSAMIDE. [Concomitant]
     Active Substance: LACOSAMIDE
     Route: 048
     Dates: start: 20200519
  20. NITROFURANTOIN. [Concomitant]
     Active Substance: NITROFURANTOIN
     Indication: URINARY TRACT INFECTION
     Route: 048
     Dates: start: 20190403, end: 20190405
  21. SODIUM CHLORIDE. [Concomitant]
     Active Substance: SODIUM CHLORIDE
     Indication: HYPOKALAEMIA
     Dosage: 1 OTHER, QD
     Route: 042
     Dates: start: 20190329, end: 20190401
  22. SIMVASTATIN. [Concomitant]
     Active Substance: SIMVASTATIN
     Route: 048
     Dates: start: 2019
  23. DEXAMETHASONE. [Concomitant]
     Active Substance: DEXAMETHASONE
     Route: 048
     Dates: start: 202005
  24. DEXAMETHASONE. [Concomitant]
     Active Substance: DEXAMETHASONE
     Route: 048
     Dates: start: 201812
  25. PERTUZUMAB. [Suspect]
     Active Substance: PERTUZUMAB
     Indication: BREAST CANCER METASTATIC
     Dosage: (DOSE MODIFIED)
     Route: 042
     Dates: start: 20180116, end: 20180116
  26. ASPIRIN. [Concomitant]
     Active Substance: ASPIRIN
     Route: 048
     Dates: start: 2019, end: 2019
  27. LACOSAMIDE. [Concomitant]
     Active Substance: LACOSAMIDE
     Route: 048
     Dates: start: 20200512, end: 20200519
  28. NYSTATIN. [Concomitant]
     Active Substance: NYSTATIN
     Route: 048
     Dates: start: 20200505, end: 20200511
  29. PROCHLORPERAZINE. [Concomitant]
     Active Substance: PROCHLORPERAZINE
     Dates: start: 2020
  30. DEXAMETHASONE. [Concomitant]
     Active Substance: DEXAMETHASONE
     Route: 048
     Dates: start: 20190417, end: 20190424
  31. MIDAZOLAM. [Concomitant]
     Active Substance: MIDAZOLAM
     Route: 058
  32. PERTUZUMAB. [Suspect]
     Active Substance: PERTUZUMAB
     Dosage: (DRUG DISCONTINUED DUE TO DISEASE PROGRESSION FURTHER ANTICANCER TREATMENT)
     Route: 042
     Dates: start: 20190118, end: 20190711
  33. GLYCOPYRRONIUM BROMIDE [Concomitant]
     Active Substance: GLYCOPYRRONIUM
     Route: 058
     Dates: start: 20190330
  34. LEVETIRACETAM. [Concomitant]
     Active Substance: LEVETIRACETAM
     Indication: SEIZURE
     Route: 048
  35. METFORMIN [Concomitant]
     Active Substance: METFORMIN HYDROCHLORIDE
     Route: 048
     Dates: end: 2018
  36. METRONIDAZOLE. [Concomitant]
     Active Substance: METRONIDAZOLE
     Indication: DIARRHOEA
     Route: 048
     Dates: start: 20190401, end: 20190403
  37. ROSUVASTATIN. [Concomitant]
     Active Substance: ROSUVASTATIN
     Route: 048
     Dates: end: 2019
  38. DEXAMETHASONE. [Concomitant]
     Active Substance: DEXAMETHASONE
     Route: 048
     Dates: start: 20190425, end: 2019
  39. NORMAL SALINE;POTASSIUM CHLORIDE [Concomitant]
     Indication: HYPOKALAEMIA
     Dosage: 1 OTHER
     Route: 042
     Dates: start: 20190329, end: 20190401
  40. LETROZOLE. [Suspect]
     Active Substance: LETROZOLE
     Indication: BREAST CANCER METASTATIC
     Route: 048
     Dates: start: 20171128
  41. DENOSUMAB [Suspect]
     Active Substance: DENOSUMAB
     Indication: PRODUCT USED FOR UNKNOWN INDICATION
     Dosage: MOST RECENT DOSE PRIOR TO AE 14/FEB/2020
     Route: 058
     Dates: start: 20180503
  42. CAPECITABINE. [Suspect]
     Active Substance: CAPECITABINE
     Indication: BREAST CANCER METASTATIC
     Dosage: (DOSE MODIFIED)
     Route: 048
     Dates: start: 20191011, end: 20191127
  43. LANSOPRAZOLE. [Concomitant]
     Active Substance: LANSOPRAZOLE
     Indication: METASTASES TO CENTRAL NERVOUS SYSTEM
     Route: 048
     Dates: start: 201812
  44. NIFEDIPINE. [Concomitant]
     Active Substance: NIFEDIPINE
     Route: 048
     Dates: end: 2018
  45. MIDAZOLAM. [Concomitant]
     Active Substance: MIDAZOLAM
     Route: 058
     Dates: start: 2020
  46. TRASTUZUMAB. [Suspect]
     Active Substance: TRASTUZUMAB
     Dosage: (DRUG DISCONTINUED DUE TO DISEASE PROGRESSION FURTHER ANTICANCER TREATMENT)
     Route: 042
     Dates: start: 20180503, end: 20181115
  47. CAPECITABINE. [Suspect]
     Active Substance: CAPECITABINE
     Route: 048
     Dates: start: 20191011
  48. CAPECITABINE. [Suspect]
     Active Substance: CAPECITABINE
     Route: 048
     Dates: start: 20191204, end: 20200214
  49. CLOTRIMAZOLE. [Concomitant]
     Active Substance: CLOTRIMAZOLE
     Route: 061
     Dates: start: 202002
  50. CYCLIZINE [Concomitant]
     Active Substance: CYCLIZINE
     Route: 048
     Dates: start: 2019, end: 20190403
  51. ENOXAPARIN [Concomitant]
     Active Substance: ENOXAPARIN
     Route: 058
     Dates: start: 202002

REACTIONS (2)
  - Dyspnoea [Recovered/Resolved]
  - Off label use [Unknown]

NARRATIVE: CASE EVENT DATE: 20200224
